FAERS Safety Report 8134360-5 (Version None)
Quarter: 2012Q1

REPORT INFORMATION
  Report Type: 
  Country: None (occurrence: None)
  Receive Date: 20120209
  Receipt Date: 20120203
  Transmission Date: 20120608
  Serious: Yes (Life-Threatening, Hospitalization, Other)
  Sender: FDA-Public Use
  Company Number: AUR-APL-2011-06261

PATIENT
  Age: 54 Year
  Sex: Male

DRUGS (8)
  1. ATORVASTATIN [Concomitant]
  2. GTN (CLYCERYL TRINITRATE) [Concomitant]
  3. ASPIRIN [Concomitant]
  4. FUROSEMIDE [Concomitant]
  5. METFORMIN HCL [Suspect]
     Indication: DIABETES MELLITUS MANAGEMENT
     Dosage: ORAL
     Route: 048
     Dates: start: 20110101, end: 20111209
  6. HEPARIN [Concomitant]
  7. RAMIPRIL [Suspect]
     Indication: HYPERTENSION
     Dosage: ORAL
     Route: 048
     Dates: start: 20110101
  8. BISOPROLOL FUMARATE [Concomitant]

REACTIONS (12)
  - HYPOTHERMIA [None]
  - RESPIRATORY FAILURE [None]
  - RENAL FAILURE ACUTE [None]
  - HYPOGLYCAEMIA [None]
  - HYPOTENSION [None]
  - FALL [None]
  - TOXICITY TO VARIOUS AGENTS [None]
  - MALAISE [None]
  - SEPSIS [None]
  - RHABDOMYOLYSIS [None]
  - VOMITING [None]
  - LACTIC ACIDOSIS [None]
